FAERS Safety Report 19926673 (Version 1)
Quarter: 2021Q4

REPORT INFORMATION
  Report Type: Spontaneous
  Country: FR (occurrence: FR)
  Receive Date: 20211007
  Receipt Date: 20211007
  Transmission Date: 20220303
  Serious: Yes (Hospitalization, Other)
  Sender: FDA-Public Use
  Company Number: FR-ROCHE-2674054

PATIENT
  Age: 55 Year
  Sex: Female
  Weight: 80 kg

DRUGS (13)
  1. CARBOPLATIN [Suspect]
     Active Substance: CARBOPLATIN
     Indication: Non-small cell lung cancer metastatic
     Dosage: UNK
     Route: 065
     Dates: start: 20200421, end: 20200813
  2. PACLITAXEL [Suspect]
     Active Substance: PACLITAXEL
     Indication: Non-small cell lung cancer metastatic
     Dosage: UNK
     Route: 065
     Dates: start: 20200421, end: 20200813
  3. ATEZOLIZUMAB [Suspect]
     Active Substance: ATEZOLIZUMAB
     Indication: Non-small cell lung cancer metastatic
     Dosage: 1200 MILLIGRAM, THREE TIMES A WEEK (ON 10/MAR/2020, MOST RECENT DOSE OF ATEZOLIZUMAB WAS ADMINISTERE
     Route: 042
     Dates: start: 20200310
  4. PRIMPERAN [Concomitant]
     Active Substance: METOCLOPRAMIDE HYDROCHLORIDE
     Indication: Prophylaxis
     Dosage: UNK
     Route: 065
     Dates: start: 20200417
  5. OXAZEPAM [Concomitant]
     Active Substance: OXAZEPAM
     Indication: Prophylaxis
     Dosage: UNK (ONCE A DAY)
     Route: 065
     Dates: start: 20200512
  6. ONDANSETRON [Concomitant]
     Active Substance: ONDANSETRON
     Indication: Prophylaxis
     Dosage: UNK (1 MONTH)
     Route: 065
     Dates: start: 20200417
  7. AMOXICILLIN [Concomitant]
     Active Substance: AMOXICILLIN
     Indication: Product used for unknown indication
     Dosage: UNK (0.33 DAY)
     Route: 065
     Dates: start: 20200227, end: 20200304
  8. ALBUTEROL SULFATE [Concomitant]
     Active Substance: ALBUTEROL SULFATE
     Indication: Prophylaxis
     Dosage: UNK
     Route: 065
     Dates: start: 20200421
  9. PANTOPRAZOLE [Concomitant]
     Active Substance: PANTOPRAZOLE
     Indication: Prophylaxis
     Dosage: UNK (ONCE A DAY)
     Route: 065
     Dates: start: 20200206
  10. XANAX [Concomitant]
     Active Substance: ALPRAZOLAM
     Indication: Prophylaxis
     Dosage: UNK (1 MONTH)
     Route: 065
     Dates: start: 20200417
  11. ESCITALOPRAM OXALATE [Concomitant]
     Active Substance: ESCITALOPRAM OXALATE
     Indication: Prophylaxis
     Dosage: UNK (ONCE A DAY)
     Route: 065
     Dates: start: 20200512
  12. Solupred [Concomitant]
     Indication: Prophylaxis
     Dosage: UNK (1 MONTH)
     Route: 065
     Dates: start: 20200417
  13. EMEND [Concomitant]
     Active Substance: APREPITANT
     Indication: Prophylaxis
     Dosage: UNK (1 MONTH)
     Route: 065
     Dates: start: 20200417

REACTIONS (3)
  - Viral infection [Recovered/Resolved]
  - Autoimmune hepatitis [Recovered/Resolved]
  - Neutropenia [Recovered/Resolved]

NARRATIVE: CASE EVENT DATE: 20200321
